FAERS Safety Report 9262282 (Version 1)
Quarter: 2013Q2

REPORT INFORMATION
  Report Type: Spontaneous
  Country: US (occurrence: US)
  Receive Date: 20130430
  Receipt Date: 20130430
  Transmission Date: 20140414
  Serious: No
  Sender: FDA-Public Use
  Company Number: US-BIOGENIDEC-2013BI038153

PATIENT
  Sex: Female

DRUGS (3)
  1. TYSABRI [Suspect]
     Indication: MULTIPLE SCLEROSIS
     Route: 042
     Dates: start: 20110310
  2. ACETAMINOPHEN [Concomitant]
     Indication: PREMEDICATION
     Route: 048
  3. LORATADINE [Concomitant]
     Indication: PREMEDICATION
     Route: 048

REACTIONS (1)
  - Off label use [Unknown]
